FAERS Safety Report 12688199 (Version 2)
Quarter: 2016Q3

REPORT INFORMATION
  Report Type: Spontaneous
  Country: RU (occurrence: RU)
  Receive Date: 20160826
  Receipt Date: 20160830
  Transmission Date: 20161109
  Serious: Yes (Death, Hospitalization)
  Sender: FDA-Public Use
  Company Number: RU-JNJFOC-20160815969

PATIENT
  Sex: Female

DRUGS (3)
  1. IMODIUM [Suspect]
     Active Substance: LOPERAMIDE HYDROCHLORIDE
     Route: 048
  2. IMODIUM [Suspect]
     Active Substance: LOPERAMIDE HYDROCHLORIDE
     Indication: DIARRHOEA
     Dosage: FROM 16-MAY TO 23-MAY IN AN UNSPECIFIED YEAR FOR AT LEAST 5 DAYS
     Route: 048
  3. SUPRADYN [Concomitant]
     Active Substance: ASCORBIC ACID\MINERALS\VITAMINS
     Route: 065

REACTIONS (18)
  - Renal failure [Unknown]
  - Enterocolitis [Fatal]
  - Body temperature increased [Unknown]
  - Peritonitis [Unknown]
  - Cardiac failure [Unknown]
  - Multiple organ dysfunction syndrome [Unknown]
  - Respiratory failure [Unknown]
  - Disseminated intravascular coagulation [Unknown]
  - Condition aggravated [Unknown]
  - Syncope [Unknown]
  - Metabolic acidosis [Unknown]
  - Cardiac arrest [Fatal]
  - Sepsis [Unknown]
  - Inflammation [Unknown]
  - Brain oedema [Unknown]
  - Abdominal distension [Unknown]
  - Altered state of consciousness [Unknown]
  - Ileus [Unknown]
